FAERS Safety Report 5675893-0 (Version None)
Quarter: 2008Q1

REPORT INFORMATION
  Report Type: 
  Country: None (occurrence: None)
  Receive Date: 20080321
  Receipt Date: 20080317
  Transmission Date: 20080703
  Serious: Yes (Hospitalization)
  Sender: FDA-Public Use
  Company Number: A0715793A

PATIENT
  Age: 64 Year
  Sex: Female

DRUGS (9)
  1. VALTREX [Suspect]
     Indication: HERPES ZOSTER
     Dosage: 1000MG TWICE PER DAY
     Route: 048
     Dates: start: 20080226, end: 20080310
  2. INSULIN [Concomitant]
  3. RENAGEL [Concomitant]
  4. COZAAR [Concomitant]
  5. NORVASC [Concomitant]
  6. LEVOTHYROXINE SODIUM [Concomitant]
  7. ZOFRAN [Concomitant]
  8. ANTIBIOTICS [Concomitant]
  9. SODIUM CHLORIDE 0.9% [Concomitant]

REACTIONS (8)
  - ADVERSE EVENT [None]
  - APHASIA [None]
  - CONVULSION [None]
  - DEPRESSION [None]
  - DYSSTASIA [None]
  - HALLUCINATION [None]
  - OVERDOSE [None]
  - SPEECH DISORDER [None]
